FAERS Safety Report 20933517 (Version 3)
Quarter: 2022Q3

REPORT INFORMATION
  Report Type: Report from Study
  Country: US (occurrence: US)
  Receive Date: 20220608
  Receipt Date: 20220708
  Transmission Date: 20221027
  Serious: Yes (Hospitalization, Other)
  Sender: FDA-Public Use
  Company Number: US-INSMED, INC.-2022-01006-US

PATIENT
  Sex: Male

DRUGS (9)
  1. ARIKAYCE [Suspect]
     Active Substance: AMIKACIN
     Indication: Mycobacterium avium complex infection
     Dosage: 295 MILLIGRAM, TIW
     Route: 055
     Dates: start: 20220411, end: 20220516
  2. ARIKAYCE [Suspect]
     Active Substance: AMIKACIN
     Dosage: UNK, QD
     Route: 055
     Dates: start: 20220523, end: 20220530
  3. ALBUTEROL [Concomitant]
     Active Substance: ALBUTEROL
     Indication: Product used for unknown indication
  4. SODIUM CHLORIDE [Concomitant]
     Active Substance: SODIUM CHLORIDE
     Indication: Product used for unknown indication
  5. AZITHROMYCIN [Concomitant]
     Active Substance: AZITHROMYCIN
     Indication: Product used for unknown indication
  6. RIFAMPIN [Concomitant]
     Active Substance: RIFAMPIN
     Indication: Product used for unknown indication
  7. ETHAMBUTOL [Concomitant]
     Active Substance: ETHAMBUTOL HYDROCHLORIDE
     Indication: Product used for unknown indication
  8. IMIPENEM [Concomitant]
     Active Substance: IMIPENEM
     Indication: Product used for unknown indication
     Dosage: UNK
  9. AMIKACIN NCD [Concomitant]
     Indication: Product used for unknown indication
     Dosage: UNK
     Route: 042
     Dates: start: 2022

REACTIONS (14)
  - Condition aggravated [Unknown]
  - Sinusitis [Unknown]
  - Pancytopenia [Unknown]
  - Pseudomonas infection [Unknown]
  - Nasal discharge discolouration [Not Recovered/Not Resolved]
  - Chest pain [Unknown]
  - Rhinorrhoea [Not Recovered/Not Resolved]
  - Sputum increased [Not Recovered/Not Resolved]
  - Chest discomfort [Recovered/Resolved]
  - Cough [Not Recovered/Not Resolved]
  - Dizziness [Recovered/Resolved]
  - Dyspnoea [Unknown]
  - Underdose [Unknown]
  - Off label use [Unknown]

NARRATIVE: CASE EVENT DATE: 20220101
